FAERS Safety Report 6578132-1 (Version None)
Quarter: 2010Q1

REPORT INFORMATION
  Report Type: 
  Country: None (occurrence: None)
  Receive Date: 20100211
  Receipt Date: 20100204
  Transmission Date: 20100710
  Serious: Yes (Other)
  Sender: FDA-Public Use
  Company Number: NZ-PFIZER INC-2009289339

PATIENT
  Age: 48 Year
  Sex: Female

DRUGS (3)
  1. PHENYTOIN [Suspect]
     Indication: EPILEPSY
     Dosage: 400 MG  DAILY
  2. LEVOTHYROXINE SODIUM [Concomitant]
     Indication: HYPOTHYROIDISM
     Dosage: 200 UG DAILY
  3. CARBAMAZEPINE [Concomitant]
     Indication: EPILEPSY
     Dosage: 500 MG, 2X/DAY

REACTIONS (2)
  - DRUG TOXICITY [None]
  - HYPOTHYROIDISM [None]
